FAERS Safety Report 7269996-7 (Version None)
Quarter: 2011Q1

REPORT INFORMATION
  Report Type: 
  Country: None (occurrence: None)
  Receive Date: 20110124
  Receipt Date: 20110124
  Transmission Date: 20110831
  Serious: No
  Sender: FDA-Public Use
  Company Number: None

PATIENT
  Age: 33 Year
  Sex: Female
  Weight: 120.2032 kg

DRUGS (1)
  1. LUNESTA [Suspect]
     Indication: INSOMNIA
     Dosage: 1 BED TIME PO
     Route: 048
     Dates: start: 20110121, end: 20110121

REACTIONS (4)
  - VOMITING [None]
  - MIGRAINE [None]
  - DYSGEUSIA [None]
  - RASH ERYTHEMATOUS [None]
